FAERS Safety Report 8377415-2 (Version None)
Quarter: 2012Q2

REPORT INFORMATION
  Report Type: 
  Country: None (occurrence: None)
  Receive Date: 20120522
  Receipt Date: 20120508
  Transmission Date: 20120825
  Serious: Yes (Hospitalization, Other)
  Sender: FDA-Public Use
  Company Number: BR-ROCHE-795643

PATIENT
  Sex: Female
  Weight: 66 kg

DRUGS (14)
  1. MABTHERA [Suspect]
     Indication: RHEUMATOID ARTHRITIS
     Route: 042
     Dates: start: 20080301, end: 20080401
  2. MABTHERA [Suspect]
     Dosage: 4 TH CYCLE
     Route: 042
     Dates: start: 20120417, end: 20120504
  3. MABTHERA [Suspect]
     Route: 042
  4. SIMVASTATIN [Concomitant]
  5. CYMBALTA [Concomitant]
  6. FOLIC ACID [Concomitant]
     Indication: PRODUCT USED FOR UNKNOWN INDICATION
  7. MABTHERA [Suspect]
     Dosage: 3 RD CYCLE
     Route: 042
  8. ENALAPRIL MALEATE [Concomitant]
  9. AMITRIPTYLINE HCL [Concomitant]
  10. OMEPRAZOLE [Concomitant]
  11. KETOPROFEN [Concomitant]
  12. CEBRALAT [Concomitant]
     Indication: PRODUCT USED FOR UNKNOWN INDICATION
  13. METHOTREXATE [Concomitant]
  14. ATENOLOL [Concomitant]

REACTIONS (23)
  - DIARRHOEA [None]
  - SPINAL CORD COMPRESSION [None]
  - HEADACHE [None]
  - BLOOD PRESSURE FLUCTUATION [None]
  - PAIN [None]
  - BLOOD CHOLESTEROL INCREASED [None]
  - HYPOAESTHESIA [None]
  - TENDON DISORDER [None]
  - GAIT DISTURBANCE [None]
  - HEPATIC NEOPLASM [None]
  - VOMITING [None]
  - INFUSION RELATED REACTION [None]
  - TENDONITIS [None]
  - BRAIN OEDEMA [None]
  - ERYTHEMA [None]
  - ACTIVITIES OF DAILY LIVING IMPAIRED [None]
  - TOOTH FRACTURE [None]
  - OEDEMA PERIPHERAL [None]
  - MUSCLE SPASMS [None]
  - DIZZINESS [None]
  - PAIN IN EXTREMITY [None]
  - SENSORY DISTURBANCE [None]
  - FALL [None]
